FAERS Safety Report 12834610 (Version 1)
Quarter: 2016Q4

REPORT INFORMATION
  Report Type: Spontaneous
  Country: JP (occurrence: JP)
  Receive Date: 20161010
  Receipt Date: 20161010
  Transmission Date: 20170207
  Serious: Yes (Other)
  Sender: FDA-Public Use
  Company Number: JP-PFIZER INC-2016465264

PATIENT

DRUGS (1)
  1. WYPAX 0.5 [Suspect]
     Active Substance: LORAZEPAM
     Route: 048

REACTIONS (1)
  - Intestinal obstruction [Unknown]
